FAERS Safety Report 9790742 (Version 3)
Quarter: 2014Q1

REPORT INFORMATION
  Report Type: Spontaneous
  Country: US (occurrence: US)
  Receive Date: 20131231
  Receipt Date: 20140211
  Transmission Date: 20141002
  Serious: Yes (Death, Hospitalization, Other)
  Sender: FDA-Public Use
  Company Number: US-PFIZER INC-2013371835

PATIENT
  Age: 70 Year
  Sex: Female

DRUGS (3)
  1. REVATIO [Suspect]
     Indication: PULMONARY HYPERTENSION
     Dosage: 20 MG, 3X/DAY
     Route: 048
     Dates: start: 20120918
  2. COUMADINE [Concomitant]
  3. ASPIRIN [Concomitant]

REACTIONS (8)
  - Cardio-respiratory arrest [Fatal]
  - Cerebrovascular accident [Fatal]
  - Cerebral haemorrhage [Fatal]
  - Haemorrhagic stroke [Fatal]
  - Haemorrhage intracranial [Fatal]
  - Brain midline shift [Fatal]
  - Respiratory arrest [Fatal]
  - Sepsis [Unknown]
